FAERS Safety Report 6347622-9 (Version None)
Quarter: 2009Q3

REPORT INFORMATION
  Report Type: 
  Country: None (occurrence: None)
  Receive Date: 20090910
  Receipt Date: 20090831
  Transmission Date: 20100115
  Serious: Yes (Hospitalization, Congenital Anomaly)
  Sender: FDA-Public Use
  Company Number: KR-CELGENEUS-090-CTHAL-09082213

PATIENT
  Sex: Female
  Weight: 49 kg

DRUGS (11)
  1. THALIDOMIDE [Suspect]
     Indication: MULTIPLE MYELOMA
     Route: 048
     Dates: start: 20090616, end: 20090718
  2. CYCLOPHOSPHAMIDE [Suspect]
     Indication: MULTIPLE MYELOMA
     Route: 048
     Dates: start: 20090616, end: 20090718
  3. DEXAMETHASONE [Suspect]
     Indication: MULTIPLE MYELOMA
     Route: 048
     Dates: start: 20090616, end: 20090718
  4. ACERTIL [Concomitant]
     Route: 048
     Dates: start: 20090614
  5. ALDACTONE [Concomitant]
     Route: 048
  6. ASPIRIN [Concomitant]
     Route: 048
     Dates: start: 20090612, end: 20090731
  7. LASIX [Concomitant]
     Route: 048
     Dates: start: 20090611, end: 20090714
  8. BARACLUDE [Concomitant]
     Indication: HEPATITIS B
     Route: 048
     Dates: start: 20090615, end: 20090815
  9. MAGO [Concomitant]
     Indication: CONSTIPATION
     Route: 048
     Dates: start: 20090611
  10. ULTRACET [Concomitant]
     Indication: PAIN
     Route: 048
     Dates: start: 20090605, end: 20090714
  11. GASTOTECT [Concomitant]
     Indication: PROPHYLAXIS
     Route: 048
     Dates: start: 20090610

REACTIONS (4)
  - DEEP VEIN THROMBOSIS [None]
  - GASTRIC ULCER [None]
  - OESOPHAGEAL CANDIDIASIS [None]
  - PULMONARY EMBOLISM [None]
